FAERS Safety Report 9400562 (Version 2)
Quarter: 2013Q3

REPORT INFORMATION
  Report Type: Spontaneous
  Country: CZ (occurrence: CZ)
  Receive Date: 20130715
  Receipt Date: 20130823
  Transmission Date: 20140515
  Serious: Yes (Other)
  Sender: FDA-Public Use
  Company Number: CZ-TEVA-416469ISR

PATIENT
  Age: 62 Year
  Sex: Male

DRUGS (1)
  1. OXALIPLATIN-TEVA 5 MG/ML, KONCENTRAT PRO PIPRAVU INFUZ ROZTOKU [Suspect]
     Dosage: CONCENTRATE 5MG/ML
     Route: 041

REACTIONS (7)
  - Paraesthesia [Unknown]
  - Hypertension [Unknown]
  - Throat tightness [Unknown]
  - Dyspnoea [Unknown]
  - Pallor [Unknown]
  - Presyncope [Unknown]
  - Hyperhidrosis [Unknown]
